FAERS Safety Report 6240853-8 (Version None)
Quarter: 2009Q2

REPORT INFORMATION
  Report Type: 
  Country: None (occurrence: None)
  Receive Date: 20090619
  Receipt Date: 20090605
  Transmission Date: 20091009
  Serious: Yes (Death)
  Sender: FDA-Public Use
  Company Number: KADN20090038

PATIENT
  Age: 16 Year
  Sex: Female

DRUGS (1)
  1. MORPHINE [Suspect]
     Dosage: INHALATION
     Route: 055
     Dates: end: 20070101

REACTIONS (3)
  - COMPLETED SUICIDE [None]
  - INTENTIONAL OVERDOSE [None]
  - SUICIDAL IDEATION [None]
